FAERS Safety Report 10133472 (Version 2)
Quarter: 2014Q2

REPORT INFORMATION
  Report Type: Spontaneous
  Country: JP (occurrence: JP)
  Receive Date: 20140428
  Receipt Date: 20140520
  Transmission Date: 20141212
  Serious: Yes (Other)
  Sender: FDA-Public Use
  Company Number: JP-ASTELLAS-2014US004050

PATIENT
  Age: 64 Year
  Sex: Female

DRUGS (2)
  1. ERLOTINIB [Suspect]
     Indication: LUNG ADENOCARCINOMA METASTATIC
     Dosage: UNK, UNKNOWN FREQ.
     Route: 048
     Dates: start: 201012, end: 201103
  2. ERLOTINIB [Suspect]
     Dosage: UNK, UNKNOWN FREQ.
     Route: 048
     Dates: start: 201104, end: 201105

REACTIONS (2)
  - Carcinoembryonic antigen increased [Recovered/Resolved]
  - Drug resistance [Unknown]
